FAERS Safety Report 20219040 (Version 1)
Quarter: 2021Q4

REPORT INFORMATION
  Report Type: Spontaneous
  Country: US (occurrence: US)
  Receive Date: 20211222
  Receipt Date: 20211222
  Transmission Date: 20220303
  Serious: Yes (Other)
  Sender: FDA-Public Use
  Company Number: US-NOVARTISPH-NVSC2021US286021

PATIENT

DRUGS (2)
  1. LETROZOLE [Suspect]
     Active Substance: LETROZOLE
     Indication: Product used for unknown indication
     Dosage: 75 MG, QD (FOR 21 DAYS, OFF 7 DAYS)
     Route: 065
  2. IBRANCE [Suspect]
     Active Substance: PALBOCICLIB
     Indication: Breast cancer
     Dosage: 75 MG, QD
     Route: 048
     Dates: start: 20211201

REACTIONS (9)
  - Neuropathy peripheral [Unknown]
  - Skin haemorrhage [Unknown]
  - Emotional disorder [Unknown]
  - Nausea [Unknown]
  - Headache [Unknown]
  - Madarosis [Unknown]
  - Insomnia [Unknown]
  - Alopecia [Unknown]
  - Constipation [Unknown]
